FAERS Safety Report 9921464 (Version 1)
Quarter: 2014Q1

REPORT INFORMATION
  Report Type: Spontaneous
  Country: BR (occurrence: BR)
  Receive Date: 20140225
  Receipt Date: 20140225
  Transmission Date: 20141002
  Serious: Yes (Hospitalization)
  Sender: FDA-Public Use
  Company Number: BR-ROCHE-1354926

PATIENT
  Sex: Female
  Weight: 57 kg

DRUGS (1)
  1. RIVOTRIL [Suspect]
     Indication: PRODUCT USED FOR UNKNOWN INDICATION
     Route: 065

REACTIONS (5)
  - Syncope [Recovered/Resolved]
  - Blood potassium decreased [Not Recovered/Not Resolved]
  - Overdose [Unknown]
  - Hypoaesthesia oral [Not Recovered/Not Resolved]
  - Speech disorder [Not Recovered/Not Resolved]
